FAERS Safety Report 19772683 (Version 2)
Quarter: 2021Q3

REPORT INFORMATION
  Report Type: Spontaneous
  Country: US (occurrence: US)
  Receive Date: 20210831
  Receipt Date: 20210831
  Transmission Date: 20211014
  Serious: Yes (Other)
  Sender: FDA-Public Use
  Company Number: US-TOLMAR, INC.-21US029937

PATIENT
  Age: 7 Day
  Sex: Male

DRUGS (6)
  1. ACYCLOVIR. [Suspect]
     Active Substance: ACYCLOVIR
     Indication: HERPES SIMPLEX
     Dosage: 50 MILLIGRAM, Q 8 HR
     Route: 042
  2. ACYCLOVIR. [Suspect]
     Active Substance: ACYCLOVIR
     Dosage: 750 MILLIGRAM, QD
     Route: 048
  3. ACYCLOVIR. [Suspect]
     Active Substance: ACYCLOVIR
     Dosage: 600 MILLIGRAM, BID
     Route: 048
  4. ACYCLOVIR. [Suspect]
     Active Substance: ACYCLOVIR
     Dosage: 80 MG/KG, QD
     Route: 042
  5. LEVETIRACETAM. [Concomitant]
     Active Substance: LEVETIRACETAM
     Indication: SEIZURE
     Dosage: 20 MG/KG, QD
  6. ACYCLOVIR. [Suspect]
     Active Substance: ACYCLOVIR
     Dosage: 320 MILLIGRAM, BID
     Route: 048

REACTIONS (3)
  - Encephalitis autoimmune [Recovering/Resolving]
  - Encephalitis haemorrhagic [Recovering/Resolving]
  - Herpes simplex encephalitis [Recovering/Resolving]
